FAERS Safety Report 6920095-0 (Version None)
Quarter: 2010Q3

REPORT INFORMATION
  Report Type: 
  Country: None (occurrence: None)
  Receive Date: 20100730
  Receipt Date: 20100108
  Transmission Date: 20110219
  Serious: Yes (Other)
  Sender: FDA-Public Use
  Company Number: OMPQ-PR-1001S-0010

PATIENT
  Age: 76 Year
  Sex: Male

DRUGS (1)
  1. OMNIPAQUE 140 [Suspect]
     Indication: PULMONARY EMBOLISM
     Dosage: 90 ML, SINGLE DOSE, I.V.
     Route: 042
     Dates: start: 20090928, end: 20090928

REACTIONS (6)
  - CEREBRAL DISORDER [None]
  - COLD SWEAT [None]
  - CONTRAST MEDIA REACTION [None]
  - DEPRESSED LEVEL OF CONSCIOUSNESS [None]
  - FEELING COLD [None]
  - LETHARGY [None]
